FAERS Safety Report 7471630-8 (Version None)
Quarter: 2011Q2

REPORT INFORMATION
  Report Type: 
  Country: None (occurrence: None)
  Receive Date: 20110502
  Receipt Date: 20110425
  Transmission Date: 20111010
  Serious: Yes (Other)
  Sender: FDA-Public Use
  Company Number: 2011001942

PATIENT
  Age: 74 Year
  Sex: Male

DRUGS (5)
  1. TARCEVA [Suspect]
     Indication: LUNG NEOPLASM MALIGNANT
     Dosage: 150 MG, QD, ORAL
     Route: 048
     Dates: start: 20110215, end: 20110405
  2. MORPHINE [Concomitant]
  3. CLEXANE (HEPARIN-F-SALT) [Concomitant]
  4. ATENOLOL [Concomitant]
  5. DIGOXIN [Concomitant]

REACTIONS (2)
  - CONJUNCTIVITIS [None]
  - PALMAR-PLANTAR ERYTHRODYSAESTHESIA SYNDROME [None]
